FAERS Safety Report 8214084-6 (Version None)
Quarter: 2012Q1

REPORT INFORMATION
  Report Type: 
  Country: None (occurrence: None)
  Receive Date: 20120314
  Receipt Date: 20120314
  Transmission Date: 20120608
  Serious: Yes (Hospitalization)
  Sender: FDA-Public Use
  Company Number: None

PATIENT
  Sex: Female
  Weight: 73.3 kg

DRUGS (2)
  1. REVLIMID [Concomitant]
  2. ZOMETA [Suspect]
     Dosage: 3 MG
     Dates: start: 20111115

REACTIONS (8)
  - FATIGUE [None]
  - NAUSEA [None]
  - DIARRHOEA [None]
  - BLOOD CREATININE INCREASED [None]
  - DIALYSIS [None]
  - DYSPNOEA [None]
  - VOMITING [None]
  - BLOOD UREA INCREASED [None]
